FAERS Safety Report 8918921 (Version 2)
Quarter: 2012Q4

REPORT INFORMATION
  Report Type: 
  Country: US (occurrence: US)
  Receive Date: 20121121
  Receipt Date: 20121213
  Transmission Date: 20130627
  Serious: Yes (Death, Hospitalization, Other)
  Sender: FDA-Public Use
  Company Number: US-ASTELLAS-2012US011289

PATIENT
  Age: 61 Year
  Sex: Female

DRUGS (1)
  1. PROGRAF [Suspect]
     Indication: RENAL TRANSPLANT
     Dosage: 1 mg, bid
     Route: 048

REACTIONS (35)
  - Death [Fatal]
  - Mitral valve incompetence [Unknown]
  - Left ventricular dysfunction [Unknown]
  - Pickwickian syndrome [Unknown]
  - Pulmonary hypertension [Unknown]
  - Atrial fibrillation [Unknown]
  - Blindness [Unknown]
  - Pyelonephritis [Unknown]
  - Hypoglycaemia [Unknown]
  - Fall [Unknown]
  - Hallucination [Unknown]
  - Dyspnoea exertional [Unknown]
  - Arthritis [Unknown]
  - Muscular weakness [Unknown]
  - Iron deficiency [Unknown]
  - Rhinorrhoea [Unknown]
  - Epistaxis [Unknown]
  - Haematochezia [Unknown]
  - Hypoxia [Unknown]
  - Sleep apnoea syndrome [Unknown]
  - Dyslipidaemia [Unknown]
  - Back injury [Unknown]
  - Hypertension [Unknown]
  - Urinary tract infection [Unknown]
  - Diarrhoea [Unknown]
  - Myalgia [Unknown]
  - Oedema peripheral [Unknown]
  - Hypercalcaemia [Unknown]
  - Anaemia of chronic disease [Unknown]
  - Cough [Unknown]
  - Gastrooesophageal reflux disease [Unknown]
  - Nasal congestion [Unknown]
  - Nausea [Unknown]
  - Depression [Unknown]
  - Anxiety [Unknown]
